FAERS Safety Report 21565006 (Version 1)
Quarter: 2022Q4

REPORT INFORMATION
  Report Type: Report from Study
  Country: US (occurrence: US)
  Receive Date: 20221108
  Receipt Date: 20221108
  Transmission Date: 20230113
  Serious: Yes (Other)
  Sender: FDA-Public Use
  Company Number: US-ABBVIE-4189365

PATIENT
  Sex: Female

DRUGS (1)
  1. CREON [Suspect]
     Active Substance: PANCRELIPASE AMYLASE\PANCRELIPASE LIPASE\PANCRELIPASE PROTEASE
     Indication: Product used for unknown indication
     Route: 048

REACTIONS (7)
  - Neoplasm malignant [Unknown]
  - Tongue disorder [Unknown]
  - Speech disorder [Unknown]
  - Incorrect dose administered [Unknown]
  - Unevaluable event [Unknown]
  - Tongue operation [Unknown]
  - Biopsy tongue [Unknown]
